FAERS Safety Report 8063523-2 (Version None)
Quarter: 2012Q1

REPORT INFORMATION
  Report Type: 
  Country: None (occurrence: None)
  Receive Date: 20120123
  Receipt Date: 20120109
  Transmission Date: 20120608
  Serious: Yes (Hospitalization)
  Sender: FDA-Public Use
  Company Number: CA-ELI_LILLY_AND_COMPANY-CA201111005487

PATIENT
  Sex: Male

DRUGS (2)
  1. GLUCAGON [Suspect]
     Indication: HYPERGLYCAEMIA
     Dosage: UNK, UNKNOWN
     Route: 065
  2. GLUCAGON [Suspect]
     Dosage: UNK, UNKNOWN

REACTIONS (1)
  - DRUG DOSE OMISSION [None]
